FAERS Safety Report 7948798-X (Version None)
Quarter: 2011Q4

REPORT INFORMATION
  Report Type: 
  Country: None (occurrence: None)
  Receive Date: 20111123
  Receipt Date: 20111111
  Transmission Date: 20120403
  Serious: Yes (Other)
  Sender: FDA-Public Use
  Company Number: 2010MA003804

PATIENT
  Age: 76 Year
  Sex: Male
  Weight: 88.4514 kg

DRUGS (43)
  1. LEVAQUIN [Concomitant]
  2. LIPITOR [Concomitant]
  3. SONATA [Concomitant]
  4. NORVASC [Concomitant]
  5. SINEMET [Concomitant]
  6. DETROL [Concomitant]
  7. ZANTAC [Concomitant]
  8. BENZONATATE [Concomitant]
  9. PATANOL [Concomitant]
  10. AMLODIPINE [Concomitant]
  11. ER KIT [Concomitant]
  12. MUCINEX [Concomitant]
  13. LEXAPRO [Concomitant]
  14. TRAZODONE HCL [Concomitant]
  15. ANTI-DIABETICS [Concomitant]
  16. WELLBUTRIN [Concomitant]
  17. QUININE [Concomitant]
  18. LYRICA [Concomitant]
  19. PROCHLORPERAZINE [Concomitant]
  20. REGULAR INSULIN [Concomitant]
  21. AMBIEN [Concomitant]
  22. GUANFACINE HYDROCHLORIDE [Concomitant]
  23. GLUCAGON [Concomitant]
  24. METOCLOPRAMIDE [Suspect]
     Indication: NAUSEA
     Dosage: 10 MG; TID; PO
     Route: 048
     Dates: start: 20060621, end: 20080522
  25. METOCLOPRAMIDE [Suspect]
     Indication: VOMITING
     Dosage: 10 MG; TID; PO
     Route: 048
     Dates: start: 20060621, end: 20080522
  26. METOCLOPRAMIDE [Suspect]
     Indication: GASTROINTESTINAL MOTILITY DISORDER
     Dosage: 10 MG; TID; PO
     Route: 048
     Dates: start: 20060621, end: 20080522
  27. LUNESTA [Concomitant]
  28. TRAMADOL HCL [Concomitant]
  29. ENABLEX [Concomitant]
  30. ASPIRIN [Concomitant]
  31. LANTUS [Concomitant]
  32. DOMPERIDONE [Concomitant]
  33. PROTONIX [Concomitant]
  34. BENZAZEPRIL [Concomitant]
  35. BUPROPION HCL [Concomitant]
  36. LIMBREL [Concomitant]
  37. CELEBREX [Concomitant]
  38. AMOXICILLIN [Concomitant]
  39. LOTENSIN [Concomitant]
  40. LUNESTA [Concomitant]
  41. KLONOPIN [Concomitant]
  42. VICODIN [Concomitant]
  43. CARBIDOPA AND LEVODOPA [Concomitant]

REACTIONS (16)
  - PARKINSON'S DISEASE [None]
  - STRIDOR [None]
  - DRY MOUTH [None]
  - GAIT DISTURBANCE [None]
  - ACTIVITIES OF DAILY LIVING IMPAIRED [None]
  - NEUROPATHY PERIPHERAL [None]
  - TARDIVE DYSKINESIA [None]
  - EMOTIONAL DISORDER [None]
  - FALL [None]
  - SPEECH DISORDER [None]
  - PARKINSONISM [None]
  - TOOTH INJURY [None]
  - EXTRAPYRAMIDAL DISORDER [None]
  - MENTAL DISORDER [None]
  - BRADYKINESIA [None]
  - DYSKINESIA [None]
